FAERS Safety Report 5306052-9 (Version None)
Quarter: 2007Q2

REPORT INFORMATION
  Report Type: 
  Country: None (occurrence: None)
  Receive Date: 20070424
  Receipt Date: 20060313
  Transmission Date: 20071010
  Serious: No
  Sender: FDA-Public Use
  Company Number: US-BRISTOL-MYERS SQUIBB COMPANY-13313010

PATIENT
  Age: 79 Year
  Sex: Female
  Weight: 57 kg

DRUGS (1)
  1. HYDREA [Suspect]
     Indication: LABORATORY TEST ABNORMAL
     Route: 048
     Dates: start: 20060101

REACTIONS (1)
  - RESTLESS LEGS SYNDROME [None]
